FAERS Safety Report 8501072-5 (Version None)
Quarter: 2012Q3

REPORT INFORMATION
  Report Type: 
  Country: None (occurrence: None)
  Receive Date: 20120710
  Receipt Date: 20120704
  Transmission Date: 20120928
  Serious: Yes (Hospitalization, Other)
  Sender: FDA-Public Use
  Company Number: AU-B.I. PHARMACEUTICALS,INC./RIDGEFIELD-2012-AU-00283AU

PATIENT
  Sex: Male

DRUGS (11)
  1. PRADAXA [Suspect]
     Indication: CEREBROVASCULAR ACCIDENT
  2. LIPITOR [Concomitant]
     Dosage: 20 MG
  3. PANADOL OSTEO [Concomitant]
     Dosage: 2 DAILY
  4. INDOPRIL [Concomitant]
     Dosage: 2 MG
     Dates: end: 20111201
  5. TRANSDERM-NITRO [Concomitant]
  6. FRUSEMIDE [Concomitant]
     Dosage: 40 MG
  7. PRADAXA [Suspect]
     Indication: ATRIAL FIBRILLATION
     Dosage: 220 MG
     Dates: start: 20110706, end: 20111201
  8. FRUSEMIDE [Concomitant]
     Dosage: 80 MG
  9. SERTRA [Concomitant]
     Dosage: 50 MG
  10. METOPROLOL TARTRATE [Concomitant]
     Dosage: 12.5 MG
     Dates: end: 20111201
  11. OSTEVIT D [Concomitant]
     Dosage: 1 MANE

REACTIONS (5)
  - FALL [None]
  - GASTROINTESTINAL HAEMORRHAGE [None]
  - RENAL IMPAIRMENT [None]
  - HAEMOGLOBIN DECREASED [None]
  - CEREBROVASCULAR ACCIDENT [None]
